FAERS Safety Report 9628742 (Version 2)
Quarter: 2013Q4

REPORT INFORMATION
  Report Type: Report from Study
  Country: CA (occurrence: CA)
  Receive Date: 20131017
  Receipt Date: 20131024
  Transmission Date: 20140711
  Serious: Yes (Hospitalization, Other)
  Sender: FDA-Public Use
  Company Number: CA-JNJFOC-20131007846

PATIENT
  Age: 63 Year
  Sex: Male
  Weight: 90 kg

DRUGS (6)
  1. REMICADE [Suspect]
     Indication: PSORIATIC ARTHROPATHY
     Route: 042
     Dates: start: 20080429
  2. LIPITOR [Concomitant]
     Dosage: HALF TABLET
     Route: 065
  3. ACETYL SALICYLIC ACID [Concomitant]
     Route: 065
  4. PLAVIX [Concomitant]
     Route: 048
  5. SYNTHROID [Concomitant]
     Route: 048
  6. TECTA [Concomitant]
     Route: 048

REACTIONS (1)
  - Prostate cancer stage I [Recovered/Resolved]
